FAERS Safety Report 9893289 (Version 1)
Quarter: 2014Q1

REPORT INFORMATION
  Report Type: Spontaneous
  Country: US (occurrence: US)
  Receive Date: 20140213
  Receipt Date: 20140213
  Transmission Date: 20141002
  Serious: Yes (Other)
  Sender: FDA-Public Use
  Company Number: US-ASTRAZENECA-2014SE08496

PATIENT
  Age: 52 Year
  Sex: Female
  Weight: 81.6 kg

DRUGS (2)
  1. PULMICORT RESPULES [Suspect]
     Indication: EOSINOPHILIC OESOPHAGITIS
     Route: 048
     Dates: start: 201401
  2. PULMICORT RESPULES [Suspect]
     Indication: EOSINOPHILIC OESOPHAGITIS
     Route: 048

REACTIONS (3)
  - Intentional drug misuse [Unknown]
  - Off label use [Unknown]
  - Off label use [Unknown]
